FAERS Safety Report 9403032 (Version 3)
Quarter: 2013Q3

REPORT INFORMATION
  Report Type: Spontaneous
  Country: US (occurrence: US)
  Receive Date: 20130716
  Receipt Date: 20130903
  Transmission Date: 20140515
  Serious: Yes (Hospitalization)
  Sender: FDA-Public Use
  Company Number: US-BRISTOL-MYERS SQUIBB COMPANY-18971051

PATIENT
  Age: 54 Year
  Sex: Female
  Weight: 94.78 kg

DRUGS (8)
  1. BYDUREON [Suspect]
     Indication: INSULIN RESISTANCE
     Dosage: NO OF DOSES-10?LAST DOSE-29MAY13,18JUL13?LOT#73229,FEB16
     Route: 058
     Dates: start: 20130515
  2. METFORMIN HCL [Suspect]
     Indication: TYPE 2 DIABETES MELLITUS
     Route: 048
  3. METFORMIN HCL [Suspect]
     Indication: NAUSEA
     Route: 048
  4. METFORMIN HCL [Suspect]
     Indication: HEADACHE
     Route: 048
  5. METFORMIN HCL [Suspect]
     Indication: DIURETIC THERAPY
     Route: 048
  6. POTASSIUM [Concomitant]
  7. VITAMIN D [Concomitant]
  8. CALCIUM [Concomitant]

REACTIONS (12)
  - Lipoma [Unknown]
  - Abdominal pain upper [Unknown]
  - Diarrhoea [Unknown]
  - Weight decreased [Unknown]
  - Throat tightness [Not Recovered/Not Resolved]
  - Injection site mass [Unknown]
  - Injection site bruising [Unknown]
  - Injection site pruritus [Unknown]
  - Blood glucose decreased [Recovered/Resolved]
  - Muscle spasms [Not Recovered/Not Resolved]
  - Injection site pain [Not Recovered/Not Resolved]
  - Drug dose omission [Unknown]
